FAERS Safety Report 8235762-9 (Version None)
Quarter: 2012Q1

REPORT INFORMATION
  Report Type: 
  Country: None (occurrence: None)
  Receive Date: 20120326
  Receipt Date: 20120316
  Transmission Date: 20120608
  Serious: No
  Sender: FDA-Public Use
  Company Number: CHPA2012NZ004979

PATIENT
  Sex: Female

DRUGS (2)
  1. TEA TREE OIL [Concomitant]
     Dosage: UNK, UNK
     Route: 061
  2. LAMISIL [Suspect]
     Indication: FUNGAL INFECTION
     Dosage: 1 DF, BID
     Route: 061

REACTIONS (3)
  - INAPPROPRIATE SCHEDULE OF DRUG ADMINISTRATION [None]
  - OVERDOSE [None]
  - DRUG INEFFECTIVE [None]
